FAERS Safety Report 6409808-4 (Version None)
Quarter: 2009Q4

REPORT INFORMATION
  Report Type: 
  Country: None (occurrence: None)
  Receive Date: 20091022
  Receipt Date: 20091013
  Transmission Date: 20100525
  Serious: Yes (Other)
  Sender: FDA-Public Use
  Company Number: GB-ABBOTT-09P-167-0602815-00

PATIENT
  Age: 78 Year
  Sex: Male

DRUGS (1)
  1. KLARICID [Suspect]
     Indication: LUNG INFECTION
     Dosage: 2 TABLETS PER DAY
     Route: 048
     Dates: start: 20091009

REACTIONS (2)
  - DIZZINESS [None]
  - DYSPNOEA [None]
